FAERS Safety Report 24621427 (Version 1)
Quarter: 2024Q4

REPORT INFORMATION
  Report Type: Spontaneous
  Country: US (occurrence: US)
  Receive Date: 20241114
  Receipt Date: 20241114
  Transmission Date: 20250114
  Serious: No
  Sender: JOHNSON AND JOHNSON
  Company Number: US-JNJFOC-20241124374

PATIENT

DRUGS (1)
  1. HUMAN THROMBIN [Suspect]
     Active Substance: HUMAN THROMBIN
     Indication: Product used for unknown indication
     Route: 061

REACTIONS (2)
  - Haematoma [Unknown]
  - Drug ineffective [Unknown]

NARRATIVE: CASE EVENT DATE: 20240101
